FAERS Safety Report 7250535-1 (Version None)
Quarter: 2011Q1

REPORT INFORMATION
  Report Type: 
  Country: None (occurrence: None)
  Receive Date: 20110128
  Receipt Date: 20110126
  Transmission Date: 20110831
  Serious: Yes (Hospitalization)
  Sender: FDA-Public Use
  Company Number: CO-ROCHE-755530

PATIENT
  Sex: Female

DRUGS (6)
  1. TACROLIMUS [Concomitant]
     Route: 048
  2. OMEPRAZOLE [Concomitant]
     Route: 048
  3. CELLCEPT [Suspect]
     Route: 048
     Dates: start: 20070416
  4. PREDNISOLONE [Concomitant]
     Route: 048
  5. DEFLAZACORT [Concomitant]
     Dosage: REPORTED AS: DAFLAZACORT
     Route: 048
  6. LOVASTATIN [Concomitant]
     Dosage: REPORTED AS: LOVASTATINE
     Route: 048

REACTIONS (1)
  - HEPATIC CIRRHOSIS [None]
